FAERS Safety Report 6736213-3 (Version None)
Quarter: 2010Q2

REPORT INFORMATION
  Report Type: 
  Country: None (occurrence: None)
  Receive Date: 20100521
  Receipt Date: 20100510
  Transmission Date: 20101027
  Serious: Yes (Other)
  Sender: FDA-Public Use
  Company Number: US-CEPHALON-2010002682

PATIENT
  Age: 37 Year
  Sex: Male

DRUGS (1)
  1. AMRIX [Suspect]
     Indication: MUSCLE SPASMS
     Route: 048
     Dates: start: 20100502, end: 20100503

REACTIONS (4)
  - ABDOMINAL DISTENSION [None]
  - CONSTIPATION [None]
  - FLATULENCE [None]
  - INTESTINAL OBSTRUCTION [None]
